FAERS Safety Report 17093146 (Version 1)
Quarter: 2019Q4

REPORT INFORMATION
  Report Type: Report from Study
  Country: CN (occurrence: CN)
  Receive Date: 20191129
  Receipt Date: 20191129
  Transmission Date: 20200122
  Serious: Yes (Other)
  Sender: FDA-Public Use
  Company Number: CN-JNJFOC-20191131372

PATIENT

DRUGS (1)
  1. RISPERDAL [Suspect]
     Active Substance: RISPERIDONE
     Indication: SCHIZOPHRENIA
     Route: 065

REACTIONS (7)
  - Electrocardiogram QT prolonged [Unknown]
  - Myocardial necrosis marker increased [Unknown]
  - Electrocardiogram T wave abnormal [Unknown]
  - Sinus arrhythmia [Unknown]
  - Sinus bradycardia [Unknown]
  - Sinus tachycardia [Unknown]
  - Atrioventricular block [Unknown]
